FAERS Safety Report 13386811 (Version 5)
Quarter: 2019Q4

REPORT INFORMATION
  Report Type: Spontaneous
  Country: US (occurrence: US)
  Receive Date: 20170330
  Receipt Date: 20191219
  Transmission Date: 20200122
  Serious: Yes (Other)
  Sender: FDA-Public Use
  Company Number: US-PFIZER INC-2017139806

PATIENT
  Age: 62 Year
  Sex: Female
  Weight: 66 kg

DRUGS (3)
  1. LYRICA [Concomitant]
     Active Substance: PREGABALIN
     Dosage: 100 MG, UNK
     Dates: start: 2017
  2. GABAPENTIN. [Suspect]
     Active Substance: GABAPENTIN
     Dosage: 300 MG, 2X/DAY
     Route: 048
     Dates: start: 201703, end: 20170322
  3. GABAPENTIN. [Suspect]
     Active Substance: GABAPENTIN
     Indication: DIABETIC NEUROPATHY
     Dosage: 300 MG, 2X/DAY (ONE CAPSULE IN THE MORNING AND ONE CAPSULE IN EVENING)
     Route: 048
     Dates: start: 20170309, end: 201703

REACTIONS (6)
  - Sedation complication [Recovered/Resolved]
  - Drug hypersensitivity [Unknown]
  - Malaise [Unknown]
  - Off label use [Unknown]
  - Product use in unapproved indication [Unknown]
  - Syncope [Unknown]

NARRATIVE: CASE EVENT DATE: 2017
